FAERS Safety Report 21310272 (Version 1)
Quarter: 2022Q3

REPORT INFORMATION
  Report Type: Spontaneous
  Country: US (occurrence: US)
  Receive Date: 20220909
  Receipt Date: 20220909
  Transmission Date: 20221026
  Serious: Yes (Other)
  Sender: FDA-Public Use
  Company Number: US-BRISTOL-MYERS SQUIBB COMPANY-2022-101941

PATIENT
  Age: 75 Year
  Sex: Male

DRUGS (16)
  1. POMALYST [Suspect]
     Active Substance: POMALIDOMIDE
     Indication: Plasma cell myeloma
     Route: 048
  2. IRBESARTAN [Concomitant]
     Active Substance: IRBESARTAN
  3. TRADJENTA [Concomitant]
     Active Substance: LINAGLIPTIN
  4. ACYCLOVIR [Concomitant]
     Active Substance: ACYCLOVIR
  5. TAMSULOSIN HYDROCHLORIDE [Concomitant]
     Active Substance: TAMSULOSIN HYDROCHLORIDE
  6. GLIMEPIRIDE [Concomitant]
     Active Substance: GLIMEPIRIDE
  7. JARDIANCE [Concomitant]
     Active Substance: EMPAGLIFLOZIN
  8. CAVERJECT [Concomitant]
     Active Substance: ALPROSTADIL
  9. MAGNESIUM SALICYLATE [Concomitant]
     Active Substance: MAGNESIUM SALICYLATE
  10. FINASTERIDE [Concomitant]
     Active Substance: FINASTERIDE
  11. ATORVASTATIN CALCIUM [Concomitant]
     Active Substance: ATORVASTATIN CALCIUM
  12. VITAMIN B-COMPLEX, PLAIN [Concomitant]
  13. ALLOPURINOL [Concomitant]
     Active Substance: ALLOPURINOL
  14. AMBIEN [Concomitant]
     Active Substance: ZOLPIDEM TARTRATE
  15. ERGOCALCIFEROL [Concomitant]
     Active Substance: ERGOCALCIFEROL
  16. AMINOSALICYLATE CALCIUM [Concomitant]
     Active Substance: AMINOSALICYLATE CALCIUM

REACTIONS (1)
  - Lyme disease [Unknown]
